FAERS Safety Report 6439259-8 (Version None)
Quarter: 2009Q4

REPORT INFORMATION
  Report Type: 
  Country: None (occurrence: None)
  Receive Date: 20091113
  Receipt Date: 20091103
  Transmission Date: 20100525
  Serious: Yes (Other)
  Sender: FDA-Public Use
  Company Number: PL-PFIZER INC-2009292416

PATIENT
  Age: 49 Year
  Sex: Female
  Weight: 60 kg

DRUGS (3)
  1. DEPO-MEDROL [Suspect]
     Dosage: 40 MG, PARAVERTEBRAL
  2. SORBIFER DURULES [Concomitant]
  3. LIGNOCAINE HYDROCHLORIDE [Concomitant]

REACTIONS (3)
  - BLOOD PRESSURE INCREASED [None]
  - HEART RATE INCREASED [None]
  - SYNCOPE [None]
